FAERS Safety Report 17776859 (Version 2)
Quarter: 2020Q2

REPORT INFORMATION
  Report Type: Spontaneous
  Country: ES (occurrence: ES)
  Receive Date: 20200513
  Receipt Date: 20200605
  Transmission Date: 20200714
  Serious: Yes (Other)
  Sender: FDA-Public Use
  Company Number: ES-TEVA-2020-ES-1233507

PATIENT
  Age: 27 Year
  Sex: Male

DRUGS (4)
  1. AZITROMICINA (7019A) [Suspect]
     Active Substance: AZITHROMYCIN
     Indication: CORONAVIRUS INFECTION
     Dosage: 250 MILLIGRAM DAILY;
     Route: 048
     Dates: start: 20200322, end: 20200326
  2. NORDIMET 22,5 MG SOLUCION INYECTABLE EN PLUMA PRECARGADA, 4 PLUMAS PRE [Concomitant]
     Indication: STILL^S DISEASE
     Dosage: 1 INY SC ON MONDAY
     Route: 058
     Dates: start: 20170323, end: 20200320
  3. HIDROXICLOROQUINA (2143A) [Suspect]
     Active Substance: HYDROXYCHLOROQUINE
     Indication: CORONAVIRUS INFECTION
     Dosage: 400 MILLIGRAM DAILY;
     Route: 048
     Dates: start: 20200322, end: 20200326
  4. ISDIBEN 20 MG CAPSULAS BLANDAS , 50 C?PSULAS [Concomitant]
     Indication: ACNE
     Dosage: 1 CP EVERY 48 HOURS, 20 MG
     Route: 048
     Dates: start: 20200320

REACTIONS (2)
  - Hepatitis [Recovered/Resolved]
  - Rash [Recovered/Resolved]

NARRATIVE: CASE EVENT DATE: 20200326
